FAERS Safety Report 18432209 (Version 2)
Quarter: 2020Q4

REPORT INFORMATION
  Report Type: Spontaneous
  Country: US (occurrence: US)
  Receive Date: 20201027
  Receipt Date: 20201105
  Transmission Date: 20210114
  Serious: Yes (Death, Hospitalization, Other)
  Sender: FDA-Public Use
  Company Number: US-009507513-2010USA009787

PATIENT
  Age: 76 Year
  Sex: Male
  Weight: 61.22 kg

DRUGS (8)
  1. XARELTO [Concomitant]
     Active Substance: RIVAROXABAN
     Dosage: 1 TABLET(S) DAILY
  2. POTASSIUM CHLORIDE. [Concomitant]
     Active Substance: POTASSIUM CHLORIDE
     Dosage: 1 TABLET(S) 2 TIMES DAILY
     Route: 048
     Dates: start: 20200917, end: 2020
  3. DEXAMETHASONE ACETATE [Concomitant]
     Active Substance: DEXAMETHASONE ACETATE
  4. KEYTRUDA [Suspect]
     Active Substance: PEMBROLIZUMAB
     Dosage: 200 MILLIGRAM(S) EVERY 3 WEEKS QTY 2 VIAL FOR 21 DAY(S) REFILLS: 6
     Dates: start: 20200921
  5. LEVOTHYROXINE SODIUM. [Concomitant]
     Active Substance: LEVOTHYROXINE SODIUM
     Dosage: 1 TABLET(S) DAILY
     Route: 048
     Dates: start: 20201005, end: 20201104
  6. KEYTRUDA [Suspect]
     Active Substance: PEMBROLIZUMAB
     Indication: LUNG NEOPLASM MALIGNANT
     Dosage: UNK
     Dates: start: 20170206
  7. TYLENOL [Concomitant]
     Active Substance: ACETAMINOPHEN
     Dosage: 1 TABLET(S) EVERY 6 HOURS
     Route: 048
  8. PROAIR HFA [Concomitant]
     Active Substance: ALBUTEROL SULFATE
     Dosage: 2 PUFF EVERY 4 HOURS; STRENGTH 108 (90 BASE) MCG/ACT

REACTIONS (49)
  - Respiratory failure [Fatal]
  - Adrenal mass [Unknown]
  - Anaemia of chronic disease [Unknown]
  - Treatment noncompliance [Unknown]
  - Anaemia macrocytic [Unknown]
  - General physical health deterioration [Unknown]
  - Hyponatraemia [Unknown]
  - Adult failure to thrive [Unknown]
  - Chronic obstructive pulmonary disease [Unknown]
  - Mucosal hypertrophy [Unknown]
  - Abnormal loss of weight [Unknown]
  - Dyspnoea [Unknown]
  - Vision blurred [Unknown]
  - Renal function test abnormal [Unknown]
  - Headache [Unknown]
  - Malignant neoplasm progression [Unknown]
  - Hypokalaemia [Unknown]
  - Intervertebral disc space narrowing [Unknown]
  - Hypercoagulation [Unknown]
  - Thrombocytosis [Unknown]
  - Eosinophil count increased [Unknown]
  - Laboratory test abnormal [Unknown]
  - Viral infection [Unknown]
  - Hypocalcaemia [Unknown]
  - Anaemia of malignant disease [Unknown]
  - Upper respiratory tract infection [Unknown]
  - Lymphadenopathy mediastinal [Unknown]
  - Fatigue [Unknown]
  - Nausea [Unknown]
  - Product use issue [Unknown]
  - Atrophic thyroiditis [Unknown]
  - Hypothyroidism [Unknown]
  - Pneumonia [Unknown]
  - Spinal osteoarthritis [Unknown]
  - Ill-defined disorder [Unknown]
  - Inappropriate schedule of product administration [Unknown]
  - Nephrolithiasis [Unknown]
  - Thrombocytopenia [Unknown]
  - Emphysema [Unknown]
  - Neutrophilia [Unknown]
  - Decreased appetite [Unknown]
  - Respiratory distress [Unknown]
  - Normocytic anaemia [Unknown]
  - Hepatic function abnormal [Unknown]
  - Hyperglycaemia [Unknown]
  - Lymphopenia [Unknown]
  - Rash [Unknown]
  - Metastases to central nervous system [Unknown]
  - Anaemia [Unknown]

NARRATIVE: CASE EVENT DATE: 202004
